FAERS Safety Report 17763965 (Version 3)
Quarter: 2020Q2

REPORT INFORMATION
  Report Type: Report from Study
  Country: None (occurrence: US)
  Receive Date: 20200510
  Receipt Date: 20200602
  Transmission Date: 20200714
  Serious: Yes (Other)
  Sender: FDA-Public Use
  Company Number: US-ABBVIE-20K-163-3392839-00

PATIENT
  Age: 71 Year
  Sex: Female

DRUGS (2)
  1. VIDAZA [Concomitant]
     Active Substance: AZACITIDINE
     Indication: PRODUCT USED FOR UNKNOWN INDICATION
     Route: 065
     Dates: start: 20200504
  2. VENCLEXTA [Suspect]
     Active Substance: VENETOCLAX
     Indication: CHRONIC LYMPHOCYTIC LEUKAEMIA
     Route: 048
     Dates: start: 20200504

REACTIONS (10)
  - Arthralgia [Unknown]
  - Dysgeusia [Unknown]
  - Product taste abnormal [Unknown]
  - Candida infection [Recovering/Resolving]
  - Nausea [Recovering/Resolving]
  - Haemoglobin decreased [Unknown]
  - Back pain [Unknown]
  - Blood count abnormal [Unknown]
  - Asthenia [Unknown]
  - Product complaint [Unknown]

NARRATIVE: CASE EVENT DATE: 202005
